FAERS Safety Report 8877374 (Version 1)
Quarter: 2012Q4

REPORT INFORMATION
  Report Type: 
  Country: US (occurrence: US)
  Receive Date: 20121023
  Receipt Date: 20121023
  Transmission Date: 20130627
  Serious: No
  Sender: FDA-Public Use
  Company Number: US-AMGEN-USASP2012059505

PATIENT
  Age: 45 Year
  Sex: Female

DRUGS (6)
  1. ENBREL [Suspect]
     Indication: PSORIASIS
     Dosage: 50 mg, 2 times/wk
     Route: 058
     Dates: start: 20120830, end: 20120918
  2. PAXIL [Concomitant]
     Dosage: 20 mg, UNK
     Route: 048
  3. GLUCOPHAGE [Concomitant]
     Dosage: 500 mg, UNK
     Route: 048
  4. TOPAMAX [Concomitant]
     Dosage: 5 mg, UNK
     Route: 048
  5. ENALAPRIL [Concomitant]
     Dosage: 20 mg, UNK
     Route: 048
  6. CALCIUM [Concomitant]
     Dosage: 1200 mg, UNK
     Route: 048

REACTIONS (3)
  - Injection site reaction [Recovered/Resolved]
  - Injection site erythema [Recovered/Resolved]
  - Injection site pruritus [Recovered/Resolved]
